FAERS Safety Report 25507861 (Version 1)
Quarter: 2025Q3

REPORT INFORMATION
  Report Type: Spontaneous
  Country: US (occurrence: US)
  Receive Date: 20250703
  Receipt Date: 20250703
  Transmission Date: 20251020
  Serious: No
  Sender: SANDOZ
  Company Number: US-SANDOZ-SDZ2025US045083

PATIENT
  Sex: Female
  Weight: 84.55 kg

DRUGS (2)
  1. CYCLOSPORINE [Suspect]
     Active Substance: CYCLOSPORINE
     Indication: Product used for unknown indication
     Route: 065
  2. DUPIXENT [Suspect]
     Active Substance: DUPILUMAB
     Indication: Psoriasis
     Dosage: 300 MG, Q2W; (STRENGTH: 300MG/2ML)
     Route: 058

REACTIONS (6)
  - Pustular psoriasis [Unknown]
  - Dry skin [Unknown]
  - Pruritus [Unknown]
  - Psoriasis [Unknown]
  - Drug intolerance [Unknown]
  - Product use in unapproved indication [Unknown]
